FAERS Safety Report 7347342-8 (Version None)
Quarter: 2011Q1

REPORT INFORMATION
  Report Type: 
  Country: None (occurrence: None)
  Receive Date: 20110311
  Receipt Date: 20110302
  Transmission Date: 20110831
  Serious: Yes (Hospitalization)
  Sender: FDA-Public Use
  Company Number: JP-ELI_LILLY_AND_COMPANY-JP201103000820

PATIENT
  Sex: Female
  Weight: 2.422 kg

DRUGS (2)
  1. UPFEN [Concomitant]
     Indication: PSYCHOTIC DISORDER
     Dosage: 0.5 MG, 2/D
     Route: 064
     Dates: start: 20100901, end: 20110127
  2. ZYPREXA [Suspect]
     Indication: PSYCHOTIC DISORDER
     Dosage: 10 MG, DAILY (1/D)
     Route: 064

REACTIONS (4)
  - FEEDING DISORDER NEONATAL [None]
  - SMALL FOR DATES BABY [None]
  - SOMNOLENCE NEONATAL [None]
  - DRUG EXPOSURE DURING PREGNANCY [None]
